FAERS Safety Report 7494134-5 (Version None)
Quarter: 2011Q2

REPORT INFORMATION
  Report Type: 
  Country: None (occurrence: None)
  Receive Date: 20110520
  Receipt Date: 20110509
  Transmission Date: 20111010
  Serious: Yes (Hospitalization)
  Sender: FDA-Public Use
  Company Number: JP-JNJFOC-20110507374

PATIENT
  Age: 76 Year
  Sex: Female

DRUGS (5)
  1. LEVOFLOXACIN [Suspect]
     Route: 048
     Dates: start: 20110422, end: 20110425
  2. ASPIRIN [Concomitant]
     Route: 065
  3. CINAL [Concomitant]
     Route: 065
  4. LEVOFLOXACIN [Suspect]
     Route: 048
     Dates: start: 20110420, end: 20110420
  5. LEVOFLOXACIN [Suspect]
     Indication: INFECTION
     Route: 048
     Dates: start: 20110407, end: 20110418

REACTIONS (1)
  - HENOCH-SCHONLEIN PURPURA [None]
